FAERS Safety Report 13508963 (Version 2)
Quarter: 2017Q2

REPORT INFORMATION
  Report Type: Spontaneous
  Country: US (occurrence: US)
  Receive Date: 20170503
  Receipt Date: 20170606
  Transmission Date: 20170830
  Serious: No
  Sender: FDA-Public Use
  Company Number: US-SHIRE-US201709668

PATIENT
  Sex: Female
  Weight: 61.22 kg

DRUGS (4)
  1. VITAMIN D                          /00107901/ [Concomitant]
     Active Substance: ERGOCALCIFEROL
     Indication: VITAMIN D DECREASED
     Dosage: UNK (2000 CAPSULE PO DAILY), 1X/DAY:QD
     Route: 048
     Dates: start: 2011
  2. PROPRANOLOL [Concomitant]
     Active Substance: PROPRANOLOL HYDROCHLORIDE
     Indication: HEART RATE INCREASED
     Dosage: 10 MG, 3X/DAY:TID
     Route: 048
     Dates: start: 1992
  3. LIALDA [Suspect]
     Active Substance: MESALAMINE
     Dosage: 3.6 G (THREE 1.2 GRAMS), 1X/DAY:QD (INCREASED TO)
     Route: 048
     Dates: start: 2012
  4. LIALDA [Suspect]
     Active Substance: MESALAMINE
     Indication: CROHN^S DISEASE
     Dosage: 2.4 G (TWO 1.2 GRAMS PILLS), 1X/DAY:QD (EVERY MORNING)
     Route: 048
     Dates: start: 2012

REACTIONS (5)
  - Blood alkaline phosphatase increased [Not Recovered/Not Resolved]
  - Liver function test abnormal [Not Recovered/Not Resolved]
  - Hypothyroidism [Not Recovered/Not Resolved]
  - Product use in unapproved indication [Not Recovered/Not Resolved]
  - Adverse event [Unknown]

NARRATIVE: CASE EVENT DATE: 2012
